FAERS Safety Report 24286521 (Version 3)
Quarter: 2024Q4

REPORT INFORMATION
  Report Type: Report from Study
  Country: US (occurrence: US)
  Receive Date: 20240905
  Receipt Date: 20241001
  Transmission Date: 20250115
  Serious: Yes (Hospitalization)
  Sender: ABBVIE
  Company Number: US-ABBVIE-5903563

PATIENT
  Age: 74 Year
  Sex: Female

DRUGS (3)
  1. CREON [Suspect]
     Active Substance: PANCRELIPASE AMYLASE\PANCRELIPASE LIPASE\PANCRELIPASE PROTEASE
     Indication: Pancreatic carcinoma
     Dosage: FREQUENCY TEXT: 2 EACH MEAL AND 1 EACH SNACK
     Route: 048
     Dates: start: 20240619
  2. CREON [Suspect]
     Active Substance: PANCRELIPASE AMYLASE\PANCRELIPASE LIPASE\PANCRELIPASE PROTEASE
     Indication: Pancreatic carcinoma
     Dosage: TIME INTERVAL: 0.33333333 DAYS
     Route: 048
     Dates: start: 20240531
  3. KRAZATI [Concomitant]
     Active Substance: ADAGRASIB
     Indication: Neoplasm malignant
     Dates: start: 20240501

REACTIONS (6)
  - Cardiac failure congestive [Recovered/Resolved with Sequelae]
  - Chest pain [Recovered/Resolved]
  - Aortic rupture [Recovering/Resolving]
  - Venous occlusion [Recovering/Resolving]
  - Cardiac disorder [Unknown]
  - Dyspnoea [Not Recovered/Not Resolved]

NARRATIVE: CASE EVENT DATE: 20240801
